FAERS Safety Report 14651286 (Version 3)
Quarter: 2018Q2

REPORT INFORMATION
  Report Type: Spontaneous
  Country: US (occurrence: US)
  Receive Date: 20180316
  Receipt Date: 20180525
  Transmission Date: 20180711
  Serious: Yes (Other)
  Sender: FDA-Public Use
  Company Number: US-GILEAD-2018-0325420

PATIENT
  Age: 34 Year
  Sex: Male

DRUGS (2)
  1. TRUVADA [Suspect]
     Active Substance: EMTRICITABINE\TENOFOVIR DISOPROXIL FUMARATE
     Dosage: 200MG/300MG, QD
     Route: 048
     Dates: start: 201607, end: 201704
  2. TRUVADA [Suspect]
     Active Substance: EMTRICITABINE\TENOFOVIR DISOPROXIL FUMARATE
     Indication: PROPHYLAXIS AGAINST HIV INFECTION
     Dosage: 200MG/300MG, QD
     Route: 048
     Dates: start: 201602, end: 201605

REACTIONS (3)
  - Acute HIV infection [Not Recovered/Not Resolved]
  - Drug ineffective [Not Recovered/Not Resolved]
  - Genotype drug resistance test positive [Not Recovered/Not Resolved]
